FAERS Safety Report 10048165 (Version 2)
Quarter: 2014Q2

REPORT INFORMATION
  Report Type: Spontaneous
  Country: US (occurrence: US)
  Receive Date: 20140331
  Receipt Date: 20140410
  Transmission Date: 20141212
  Serious: Yes (Life-Threatening, Hospitalization)
  Sender: FDA-Public Use
  Company Number: US-ACTELION-A-US2014-96357

PATIENT
  Age: 29 Year
  Sex: Female

DRUGS (7)
  1. VELETRI [Suspect]
     Indication: PULMONARY ARTERIAL HYPERTENSION
     Dosage: 30 NG/KG, PER MIN
     Route: 041
     Dates: start: 20130325
  2. ADCIRCA [Concomitant]
     Dosage: 40 MG, QD
     Route: 048
     Dates: start: 20130620
  3. LETAIRIS [Concomitant]
     Dosage: 5 MG, QD
     Route: 048
     Dates: start: 20130820
  4. ALDACTONE [Concomitant]
     Dosage: 50 MG, QD
     Route: 048
     Dates: start: 20130603
  5. LASIX [Concomitant]
     Dosage: 40 MG, BID
     Route: 048
     Dates: start: 20130415
  6. PHENERGAN [Concomitant]
     Dosage: 12.5 MG, Q6HRS
     Route: 048
  7. K-DUR [Concomitant]
     Dosage: 20 MEQ, QD
     Route: 048

REACTIONS (15)
  - Pneumonia [Unknown]
  - Septic shock [Not Recovered/Not Resolved]
  - Device related sepsis [Not Recovered/Not Resolved]
  - Pyrexia [Not Recovered/Not Resolved]
  - Dyspnoea [Not Recovered/Not Resolved]
  - Chills [Not Recovered/Not Resolved]
  - Fatigue [Not Recovered/Not Resolved]
  - Tachypnoea [Not Recovered/Not Resolved]
  - Hyperhidrosis [Not Recovered/Not Resolved]
  - Respiratory distress [Not Recovered/Not Resolved]
  - Thrombosis in device [Unknown]
  - Back pain [Unknown]
  - Catheter site discharge [Not Recovered/Not Resolved]
  - Haemorrhage [Not Recovered/Not Resolved]
  - Catheter placement [Recovered/Resolved]
